FAERS Safety Report 10265841 (Version 1)
Quarter: 2014Q2

REPORT INFORMATION
  Report Type: Report from Study
  Country: AU (occurrence: AU)
  Receive Date: 20140627
  Receipt Date: 20140627
  Transmission Date: 20141212
  Serious: Yes (Other)
  Sender: FDA-Public Use
  Company Number: AU-GLAXOSMITHKLINE-B1007575A

PATIENT
  Age: 29 Year
  Sex: 0

DRUGS (2)
  1. VOLIBRIS [Suspect]
     Indication: PULMONARY ARTERIAL HYPERTENSION
     Dosage: 10MG PER DAY
  2. FLOLAN [Suspect]
     Indication: PULMONARY ARTERIAL HYPERTENSION
     Route: 042

REACTIONS (1)
  - Device related infection [Unknown]
